FAERS Safety Report 7726003-7 (Version None)
Quarter: 2011Q3

REPORT INFORMATION
  Report Type: 
  Country: None (occurrence: None)
  Receive Date: 20110902
  Receipt Date: 20110825
  Transmission Date: 20111222
  Serious: Yes (Other)
  Sender: FDA-Public Use
  Company Number: US-ROCHE-552290

PATIENT
  Sex: Female
  Weight: 52.2 kg

DRUGS (1)
  1. ACCUTANE [Suspect]
     Indication: ACNE
     Dosage: 40MG QAM, 20MG QHS
     Route: 065
     Dates: start: 19980105, end: 19980220

REACTIONS (11)
  - GASTROOESOPHAGEAL REFLUX DISEASE [None]
  - CROHN'S DISEASE [None]
  - HEART RATE INCREASED [None]
  - IRRITABLE BOWEL SYNDROME [None]
  - INFLAMMATORY BOWEL DISEASE [None]
  - COLITIS [None]
  - DEPRESSION [None]
  - CHILLS [None]
  - ARTHRALGIA [None]
  - STOMATITIS [None]
  - HAEMORRHOIDS [None]
